FAERS Safety Report 16870190 (Version 1)
Quarter: 2019Q3

REPORT INFORMATION
  Report Type: Spontaneous
  Country: DK (occurrence: DK)
  Receive Date: 20190930
  Receipt Date: 20190930
  Transmission Date: 20191005
  Serious: Yes (Hospitalization)
  Sender: FDA-Public Use
  Company Number: DK-PFIZER INC-2019416224

PATIENT
  Age: 32 Year
  Sex: Female

DRUGS (13)
  1. OLANZAPINE. [Suspect]
     Active Substance: OLANZAPINE
     Dosage: 5 MG, 2X/DAY
     Route: 048
     Dates: start: 20160420
  2. SERTRALINE [Concomitant]
     Active Substance: SERTRALINE HYDROCHLORIDE
     Indication: OBSESSIVE-COMPULSIVE DISORDER
     Dosage: DIFFERENT DOSES AND STRENGHT, START DATE UNKNOWNN, STILL IN THE TREATMENT
     Route: 048
  3. OLANZAPINE. [Suspect]
     Active Substance: OLANZAPINE
     Dosage: 50 MG, DAILY
     Route: 048
     Dates: start: 20160519, end: 20160519
  4. CHLORPROTHIXENE [Suspect]
     Active Substance: CHLORPROTHIXENE
     Indication: SEDATION
     Dosage: 30 MG, 1X/DAY
     Route: 048
     Dates: start: 20151019, end: 20160519
  5. OLANZAPINE. [Suspect]
     Active Substance: OLANZAPINE
     Indication: ANXIETY
     Dosage: 15 MG, DAILY
     Route: 048
     Dates: start: 20160413
  6. METHYLPHENIDATE. [Concomitant]
     Active Substance: METHYLPHENIDATE
     Indication: ATTENTION DEFICIT/HYPERACTIVITY DISORDER
     Dosage: DIFFERENT DOSES AND STRENGHT, START DATE UNKNOWN, STILL IN TREATMENT
     Route: 048
  7. ALPRAZOLAM. [Suspect]
     Active Substance: ALPRAZOLAM
     Indication: SEDATION
     Dosage: TAKEN UP TO 6-8 MG DAILY
     Route: 048
     Dates: start: 20150208
  8. ORPHENADRINE [Suspect]
     Active Substance: ORPHENADRINE
     Dosage: 50 MG, 1X/DAY
     Route: 048
     Dates: start: 20160404
  9. ZOLPIDEM [Suspect]
     Active Substance: ZOLPIDEM TARTRATE
     Indication: INSOMNIA
     Dosage: UNK
     Route: 048
     Dates: start: 20150907
  10. ZOLPIDEM [Suspect]
     Active Substance: ZOLPIDEM TARTRATE
     Dosage: UNK UNK, DAILY (200-220 MG DAILY)
     Dates: start: 201603, end: 201605
  11. RISPERIDONE. [Suspect]
     Active Substance: RISPERIDONE
     Indication: ANXIETY
     Dosage: 0.5 MG, 1X/DAY
     Route: 048
     Dates: start: 20151208, end: 20160519
  12. ZOPICLONE [Suspect]
     Active Substance: ZOPICLONE
     Indication: INSOMNIA
     Dosage: 5 MG, DAILY
     Route: 048
     Dates: start: 2016
  13. QUETIAPINE. [Suspect]
     Active Substance: QUETIAPINE
     Indication: OBSESSIVE-COMPULSIVE DISORDER
     Dosage: MAR-MAY 2016 UP TO 5-700 MG DAILY
     Route: 048
     Dates: start: 20151214, end: 20160519

REACTIONS (16)
  - Anxiety [Not Recovered/Not Resolved]
  - Restlessness [Recovered/Resolved]
  - Muscle spasms [Recovered/Resolved]
  - Dry mouth [Recovered/Resolved]
  - Weight decreased [Unknown]
  - Nausea [Recovered/Resolved]
  - Constipation [Recovered/Resolved]
  - Respiratory disorder [Recovered/Resolved]
  - Skin wound [Recovered/Resolved]
  - Intentional product misuse [Recovered/Resolved]
  - Decreased appetite [Recovered/Resolved]
  - Memory impairment [Recovered/Resolved]
  - Obsessive-compulsive disorder [Not Recovered/Not Resolved]
  - Mania [Recovered/Resolved]
  - Communication disorder [Recovered/Resolved]
  - Rash [Recovered/Resolved]

NARRATIVE: CASE EVENT DATE: 201603
